FAERS Safety Report 14082522 (Version 21)
Quarter: 2018Q3

REPORT INFORMATION
  Report Type: Spontaneous
  Country: US (occurrence: US)
  Receive Date: 20171013
  Receipt Date: 20180920
  Transmission Date: 20181010
  Serious: Yes (Hospitalization, Other)
  Sender: FDA-Public Use
  Company Number: US-GLAXOSMITHKLINE-US2017GSK157034

PATIENT
  Age: 55 Year
  Sex: Female
  Weight: 63.7 kg

DRUGS (19)
  1. FLOLAN [Suspect]
     Active Substance: EPOPROSTENOL SODIUM
     Dosage: 72.7 DF, CO
  2. FLOLAN [Suspect]
     Active Substance: EPOPROSTENOL SODIUM
     Dosage: 79.5 DF, CO
     Route: 042
  3. FLOLAN DILUENT PH 12 [Suspect]
     Active Substance: GLYCINE\MANNITOL\SODIUM CHLORIDE
     Indication: PULMONARY ARTERIAL HYPERTENSION
     Dosage: UNK
     Dates: start: 20180530
  4. FLOLAN [Suspect]
     Active Substance: EPOPROSTENOL SODIUM
     Dosage: 62.5 DF, CO
     Route: 042
  5. FLOLAN [Suspect]
     Active Substance: EPOPROSTENOL SODIUM
     Dosage: UNK
     Route: 042
  6. FLOLAN DILUENT PH 12 [Suspect]
     Active Substance: GLYCINE\MANNITOL\SODIUM CHLORIDE
     Dosage: UNK
  7. FLOLAN [Suspect]
     Active Substance: EPOPROSTENOL SODIUM
     Indication: PULMONARY ARTERIAL HYPERTENSION
     Dosage: 71.2 DF, CO
     Route: 042
     Dates: start: 20060725
  8. FLOLAN [Suspect]
     Active Substance: EPOPROSTENOL SODIUM
     Dosage: 75.4 DF, CO
  9. FLOLAN [Suspect]
     Active Substance: EPOPROSTENOL SODIUM
     Indication: PULMONARY ARTERIAL HYPERTENSION
     Dosage: UNK
  10. FLOLAN [Suspect]
     Active Substance: EPOPROSTENOL SODIUM
     Indication: PULMONARY ARTERIAL HYPERTENSION
     Dosage: 71.2 DF, CO
     Route: 042
  11. FLOLAN [Suspect]
     Active Substance: EPOPROSTENOL SODIUM
     Dosage: 71.2 DF, CO
     Route: 042
  12. FLOLAN [Suspect]
     Active Substance: EPOPROSTENOL SODIUM
     Dosage: 72.7 DF, CO
     Route: 042
  13. FLOLAN [Suspect]
     Active Substance: EPOPROSTENOL SODIUM
     Dosage: UNK
  14. FLOLAN [Suspect]
     Active Substance: EPOPROSTENOL SODIUM
     Dosage: 79.5 NG/KG/MIN, CO
     Route: 042
  15. FLOLAN [Suspect]
     Active Substance: EPOPROSTENOL SODIUM
     Dosage: UNK
     Route: 042
  16. SERAX [Suspect]
     Active Substance: OXAZEPAM
  17. FLOLAN [Suspect]
     Active Substance: EPOPROSTENOL SODIUM
     Indication: PULMONARY ARTERIAL HYPERTENSION
     Dosage: UNK
     Dates: start: 20060725
  18. FLOLAN [Suspect]
     Active Substance: EPOPROSTENOL SODIUM
     Dosage: UNK
  19. FLOLAN [Suspect]
     Active Substance: EPOPROSTENOL SODIUM
     Dosage: 78.9 DF, CO
     Route: 042

REACTIONS (44)
  - Asthenia [Not Recovered/Not Resolved]
  - Hospitalisation [Unknown]
  - Blood pressure decreased [Unknown]
  - Decreased appetite [Unknown]
  - Dysgeusia [Unknown]
  - Pleural effusion [Unknown]
  - Device issue [Unknown]
  - Blood pressure increased [Unknown]
  - Blood pressure abnormal [Unknown]
  - Seizure like phenomena [Unknown]
  - Haematoma [Unknown]
  - Surgery [Recovering/Resolving]
  - Petechiae [Not Recovered/Not Resolved]
  - Brain natriuretic peptide abnormal [Unknown]
  - Nausea [Unknown]
  - Headache [Unknown]
  - Haemorrhagic disorder [Unknown]
  - Flushing [Unknown]
  - Pulmonary function test abnormal [Unknown]
  - Walking distance test abnormal [Unknown]
  - Hepatic function abnormal [Recovered/Resolved]
  - Brain injury [Unknown]
  - Wound [Unknown]
  - Malaise [Unknown]
  - Dyspnoea [Recovering/Resolving]
  - Tachycardia [Unknown]
  - Somnambulism [Unknown]
  - Product quality issue [Unknown]
  - Haemoptysis [Unknown]
  - Candida infection [Recovered/Resolved]
  - Internal haemorrhage [Unknown]
  - Oedema peripheral [Recovering/Resolving]
  - Fatigue [Unknown]
  - Feeling abnormal [Unknown]
  - Fall [Unknown]
  - Weight decreased [Not Recovered/Not Resolved]
  - Skin haemorrhage [Recovered/Resolved]
  - Condition aggravated [Unknown]
  - Respiratory gas exchange disorder [Unknown]
  - Hypoaesthesia [Unknown]
  - Respiratory distress [Unknown]
  - Renal impairment [Recovered/Resolved]
  - Anxiety [Unknown]
  - Arteriogram coronary abnormal [Unknown]

NARRATIVE: CASE EVENT DATE: 20171008
